FAERS Safety Report 9027969 (Version 7)
Quarter: 2013Q3

REPORT INFORMATION
  Report Type: Spontaneous
  Country: US (occurrence: None)
  Receive Date: 20120831
  Receipt Date: 20130815
  Transmission Date: 20140515
  Serious: Yes (Hospitalization, Other)
  Sender: FDA-Public Use
  Company Number: ADR-2012-01299

PATIENT
  Sex: Male

DRUGS (2)
  1. LIORESAL INTRATHECAL [Suspect]
     Indication: MUSCLE SPASTICITY
  2. LIORESAL INTRATHECAL [Suspect]
     Indication: MULTIPLE SCLEROSIS

REACTIONS (14)
  - Muscle contractions involuntary [None]
  - Rebound effect [None]
  - Drug ineffective [None]
  - Implant site extravasation [None]
  - Urinary tract infection [None]
  - Drug withdrawal syndrome [None]
  - Muscle spasticity [None]
  - Clonus [None]
  - Muscle spasms [None]
  - Feeling abnormal [None]
  - Inflammatory marker increased [None]
  - Device breakage [None]
  - Cellulitis [None]
  - Muscle spasticity [None]
